FAERS Safety Report 9361111 (Version 3)
Quarter: 2013Q3

REPORT INFORMATION
  Report Type: Spontaneous
  Country: SE (occurrence: SE)
  Receive Date: 20130621
  Receipt Date: 20130918
  Transmission Date: 20140515
  Serious: Yes (Hospitalization)
  Sender: FDA-Public Use
  Company Number: SE-ASTRAZENECA-2013SE42556

PATIENT
  Age: 76 Year
  Sex: Male

DRUGS (10)
  1. ATACAND [Suspect]
     Route: 048
  2. ESIDREX [Suspect]
     Route: 065
  3. DIKLOFENAK APOFRI [Suspect]
     Route: 065
  4. OXYNORM [Concomitant]
  5. ALVEDON [Concomitant]
     Route: 048
  6. OXYCONTIN [Concomitant]
     Route: 048
  7. OMEPRAZOL [Concomitant]
  8. HERACILLIN [Concomitant]
     Route: 048
  9. INNOHEP [Concomitant]
  10. PLAVIX [Concomitant]
     Route: 048

REACTIONS (6)
  - Hypotension [Recovered/Resolved]
  - Dehydration [Recovered/Resolved]
  - Tubulointerstitial nephritis [Recovered/Resolved]
  - Spondylitis [Unknown]
  - Renal failure acute [Recovered/Resolved]
  - Dizziness [Recovered/Resolved]
